FAERS Safety Report 18006836 (Version 1)
Quarter: 2020Q3

REPORT INFORMATION
  Report Type: Spontaneous
  Country: US (occurrence: US)
  Receive Date: 20200710
  Receipt Date: 20200710
  Transmission Date: 20201103
  Serious: No
  Sender: FDA-Public Use
  Company Number: US-SA-2020SA177964

PATIENT

DRUGS (5)
  1. OMEPRAZOLE. [Concomitant]
     Active Substance: OMEPRAZOLE
  2. MIRENA [Concomitant]
     Active Substance: LEVONORGESTREL
  3. ALLEGRA [Concomitant]
     Active Substance: FEXOFENADINE HYDROCHLORIDE
  4. DUPIXENT [Suspect]
     Active Substance: DUPILUMAB
     Indication: DERMATITIS ATOPIC
     Dosage: 300 MG, QOW
     Route: 058
     Dates: start: 20200305
  5. ADVAIR HFA [Concomitant]
     Active Substance: FLUTICASONE PROPIONATE\SALMETEROL XINAFOATE

REACTIONS (5)
  - Dermatitis atopic [Not Recovered/Not Resolved]
  - Discomfort [Not Recovered/Not Resolved]
  - Sleep disorder [Not Recovered/Not Resolved]
  - Rash [Not Recovered/Not Resolved]
  - Arthralgia [Not Recovered/Not Resolved]

NARRATIVE: CASE EVENT DATE: 2020
